FAERS Safety Report 5885099-8 (Version None)
Quarter: 2008Q3

REPORT INFORMATION
  Report Type: 
  Country: None (occurrence: None)
  Receive Date: 20080915
  Receipt Date: 20080915
  Transmission Date: 20090109
  Serious: No
  Sender: FDA-Public Use
  Company Number: None

PATIENT
  Age: 79 Year
  Sex: Male
  Weight: 81.6475 kg

DRUGS (1)
  1. TC 99M MEDRONATE 08253111 [Suspect]
     Indication: BONE SCAN
     Dosage: 25MCI SINGLE IV
     Route: 042
     Dates: start: 20080909, end: 20080909

REACTIONS (1)
  - BONE SCAN ABNORMAL [None]
